FAERS Safety Report 6767411-0 (Version None)
Quarter: 2010Q2

REPORT INFORMATION
  Report Type: 
  Country: None (occurrence: None)
  Receive Date: 20100614
  Receipt Date: 20100601
  Transmission Date: 20101027
  Serious: Yes (Life-Threatening, Hospitalization)
  Sender: FDA-Public Use
  Company Number: SE-JNJFOC-20100603061

PATIENT
  Age: 49 Year
  Sex: Female

DRUGS (2)
  1. TRAMADOL HCL [Suspect]
     Indication: DRUG USE FOR UNKNOWN INDICATION
     Route: 048
  2. ALCOHOL [Concomitant]

REACTIONS (8)
  - CONVULSION [None]
  - INTENTIONAL OVERDOSE [None]
  - LOSS OF CONSCIOUSNESS [None]
  - METABOLIC ACIDOSIS [None]
  - PULSE ABSENT [None]
  - RESPIRATORY ARREST [None]
  - SINUS TACHYCARDIA [None]
  - SUICIDE ATTEMPT [None]
